FAERS Safety Report 9391497 (Version 2)
Quarter: 2013Q3

REPORT INFORMATION
  Report Type: Report from Study
  Country: CA (occurrence: CA)
  Receive Date: 20130709
  Receipt Date: 20130823
  Transmission Date: 20140515
  Serious: Yes (Other)
  Sender: FDA-Public Use
  Company Number: CA-JNJFOC-20130702262

PATIENT
  Age: 77 Year
  Sex: Female

DRUGS (2)
  1. REMICADE [Suspect]
     Indication: RHEUMATOID ARTHRITIS
     Route: 042
     Dates: start: 20030323
  2. PREDNISONE [Concomitant]
     Route: 048

REACTIONS (2)
  - Bronchitis [Unknown]
  - Skin lesion [Unknown]
